FAERS Safety Report 12958644 (Version 1)
Quarter: 2016Q4

REPORT INFORMATION
  Report Type: Spontaneous
  Country: US (occurrence: US)
  Receive Date: 20161121
  Receipt Date: 20161121
  Transmission Date: 20170207
  Serious: No
  Sender: FDA-Public Use
  Company Number: PHEH2016US030029

PATIENT
  Age: 33 Year
  Sex: Female

DRUGS (1)
  1. GILENYA [Suspect]
     Active Substance: FINGOLIMOD HYDROCHLORIDE
     Indication: PRODUCT USED FOR UNKNOWN INDICATION
     Dosage: UNK
     Route: 065
     Dates: end: 201609

REACTIONS (10)
  - Malaise [Unknown]
  - Eye pain [Unknown]
  - Drug intolerance [Unknown]
  - Heart rate decreased [Unknown]
  - Vomiting [Unknown]
  - Nausea [Unknown]
  - Treatment failure [Unknown]
  - Palpitations [Unknown]
  - Diarrhoea [Unknown]
  - Visual impairment [Unknown]
